FAERS Safety Report 15592926 (Version 1)
Quarter: 2018Q4

REPORT INFORMATION
  Report Type: Spontaneous
  Country: US (occurrence: US)
  Receive Date: 20181107
  Receipt Date: 20181107
  Transmission Date: 20190205
  Serious: Yes (Life-Threatening, Hospitalization, Other)
  Sender: FDA-Public Use
  Company Number: None

PATIENT
  Age: 48 Year
  Sex: Female
  Weight: 45.9 kg

DRUGS (13)
  1. GABAPENTIN. [Concomitant]
     Active Substance: GABAPENTIN
  2. BENADRYL [Concomitant]
     Active Substance: DIPHENHYDRAMINE HYDROCHLORIDE
  3. IBUPROFEN. [Concomitant]
     Active Substance: IBUPROFEN
  4. SEROQUEL [Concomitant]
     Active Substance: QUETIAPINE FUMARATE
  5. LORATIDINE [Concomitant]
     Active Substance: LORATADINE
  6. TRAZODONE [Concomitant]
     Active Substance: TRAZODONE HYDROCHLORIDE
  7. SUDAFED [Concomitant]
     Active Substance: PSEUDOEPHEDRINE HYDROCHLORIDE
  8. ASPIRIN. [Concomitant]
     Active Substance: ASPIRIN
  9. DIAZEPAM. [Concomitant]
     Active Substance: DIAZEPAM
  10. EXCEDRIN EXTRA STRENGTH [Concomitant]
     Active Substance: ACETAMINOPHEN\ASPIRIN\CAFFEINE
  11. ZITHROMAX [Suspect]
     Active Substance: AZITHROMYCIN DIHYDRATE
     Indication: SINUSITIS
     Dosage: ?          QUANTITY:5 TABLET(S);?
     Route: 048
  12. TIZANIDINE. [Concomitant]
     Active Substance: TIZANIDINE
  13. TYLENOL [Concomitant]
     Active Substance: ACETAMINOPHEN

REACTIONS (16)
  - Asthenia [None]
  - Seizure [None]
  - Tinnitus [None]
  - Eye swelling [None]
  - Dysgeusia [None]
  - Peripheral swelling [None]
  - Weight decreased [None]
  - Pyrexia [None]
  - Chest pain [None]
  - Lymphoedema [None]
  - Skin discolouration [None]
  - Abdominal pain [None]
  - Pain [None]
  - Decreased appetite [None]
  - Insomnia [None]
  - Periorbital disorder [None]

NARRATIVE: CASE EVENT DATE: 20181002
